FAERS Safety Report 8826280 (Version 1)
Quarter: 2012Q4

REPORT INFORMATION
  Report Type: 
  Country: US (occurrence: US)
  Receive Date: 20121005
  Receipt Date: 20121005
  Transmission Date: 20130627
  Serious: Yes (Death, Hospitalization, Other)
  Sender: FDA-Public Use
  Company Number: US-BRISTOL-MYERS SQUIBB COMPANY-16998668

PATIENT
  Age: 93 Year
  Sex: Male
  Weight: 64 kg

DRUGS (23)
  1. COUMADIN [Suspect]
     Indication: ATRIAL FIBRILLATION
     Dosage: Resta at 4mg daily
decreased to 3mg daily
     Route: 048
  2. COREG [Suspect]
     Indication: CARDIAC FAILURE CONGESTIVE
     Dosage: tablet
reduced to 3.125mg twice daily
     Route: 048
     Dates: end: 20110731
  3. ADVAIR [Suspect]
     Indication: CHRONIC OBSTRUCTIVE PULMONARY DISEASE
     Dosage: inhaler device
1df=500/50mcg
1puff
     Route: 055
     Dates: end: 20110731
  4. AVODART [Suspect]
     Indication: BENIGN PROSTATIC HYPERPLASIA
     Dosage: capsule
     Route: 048
     Dates: end: 20110731
  5. ZAROXOLYN [Suspect]
  6. LASIX [Suspect]
  7. ZESTRIL [Suspect]
  8. SPIRIVA [Concomitant]
  9. ZOCOR [Concomitant]
  10. TYLENOL EXTRA STRENGTH [Concomitant]
  11. MUCINEX [Concomitant]
  12. ALBUTEROL SULFATE [Concomitant]
  13. COLACE [Concomitant]
  14. OXYGEN [Concomitant]
  15. TERAZOSIN [Concomitant]
  16. MULTIVITAMIN [Concomitant]
  17. AZITHROMYCIN [Concomitant]
  18. DOXYCYCLINE [Concomitant]
  19. BACTRIM [Concomitant]
  20. PROSCAR [Concomitant]
  21. ATROVENT [Concomitant]
  22. SYNTHROID [Concomitant]
  23. MILK OF MAGNESIA [Concomitant]

REACTIONS (9)
  - Death [Fatal]
  - Hypoxia [Recovering/Resolving]
  - Pneumonia [Unknown]
  - Coagulopathy [Recovered/Resolved]
  - Oral candidiasis [Unknown]
  - Cardiovascular deconditioning [Unknown]
  - Deafness [Unknown]
  - Fall [Unknown]
  - Muscle strain [Unknown]
